FAERS Safety Report 20992535 (Version 1)
Quarter: 2022Q2

REPORT INFORMATION
  Report Type: Spontaneous
  Country: US (occurrence: None)
  Receive Date: 20220621
  Receipt Date: 20220621
  Transmission Date: 20220721
  Serious: Yes (Death)
  Sender: FDA-Public Use
  Company Number: None

PATIENT
  Age: 81 Year
  Sex: Female
  Weight: 47.31 kg

DRUGS (10)
  1. HYCAMTIN [Suspect]
     Active Substance: TOPOTECAN HYDROCHLORIDE
     Indication: Lung carcinoma cell type unspecified stage 0
     Dosage: 0.5MG DAILY ORAL??
     Route: 048
     Dates: start: 20220519
  2. HYCAMTIN [Suspect]
     Active Substance: TOPOTECAN HYDROCHLORIDE
     Indication: Lung carcinoma cell type unspecified stage 0
     Dosage: 3MG DAILY ORAL?
     Route: 048
     Dates: start: 20220519
  3. ALBUTEROL SULFATE [Concomitant]
     Active Substance: ALBUTEROL SULFATE
  4. ENTECAVIR [Concomitant]
     Active Substance: ENTECAVIR
  5. LEVOTHYROXINE [Concomitant]
  6. LISINOPRIL [Concomitant]
     Active Substance: LISINOPRIL
  7. LOPERAMIDE [Concomitant]
     Active Substance: LOPERAMIDE
  8. LORAZEPAM [Concomitant]
     Active Substance: LORAZEPAM
  9. ROSUVASTATIN [Concomitant]
     Active Substance: ROSUVASTATIN
  10. SERTRALINE [Concomitant]
     Active Substance: SERTRALINE HYDROCHLORIDE

REACTIONS (1)
  - Death [None]
